FAERS Safety Report 21208946 (Version 1)
Quarter: 2022Q3

REPORT INFORMATION
  Report Type: Spontaneous
  Country: ES (occurrence: ES)
  Receive Date: 20220812
  Receipt Date: 20220812
  Transmission Date: 20221026
  Serious: Yes (Other)
  Sender: FDA-Public Use
  Company Number: ES-ALLERGAN-2226207US

PATIENT
  Sex: Female

DRUGS (1)
  1. OZURDEX [Suspect]
     Active Substance: DEXAMETHASONE
     Indication: Detachment of macular retinal pigment epithelium
     Dosage: 07 MG, SINGLE
     Route: 031

REACTIONS (2)
  - Retinal pigment epithelial tear [Unknown]
  - Off label use [Unknown]
